FAERS Safety Report 24158236 (Version 1)
Quarter: 2024Q3

REPORT INFORMATION
  Report Type: Spontaneous
  Country: AR (occurrence: AR)
  Receive Date: 20240731
  Receipt Date: 20240731
  Transmission Date: 20241016
  Serious: Yes (Other)
  Sender: INCYTE
  Company Number: AR-002147023-NVSC2024AR154676

PATIENT

DRUGS (1)
  1. RUXOLITINIB [Suspect]
     Active Substance: RUXOLITINIB
     Indication: Graft versus host disease
     Dosage: UNK
     Route: 065

REACTIONS (1)
  - Hepatotoxicity [Recovered/Resolved]
